FAERS Safety Report 10574365 (Version 1)
Quarter: 2014Q4

REPORT INFORMATION
  Report Type: Spontaneous
  Country: US (occurrence: US)
  Receive Date: 20141110
  Receipt Date: 20141110
  Transmission Date: 20150529
  Serious: Yes (Other)
  Sender: FDA-Public Use
  Company Number: US-ACTAVIS-2014-23670

PATIENT
  Age: 55 Year
  Sex: Male

DRUGS (4)
  1. RIFAMPICIN (UNKNOWN) [Suspect]
     Active Substance: RIFAMPIN
     Indication: BACTERAEMIA
  2. GENTAMICIN SULFATE (UNKNOWN) [Suspect]
     Active Substance: GENTAMICIN SULFATE
     Indication: STAPHYLOCOCCAL INFECTION
     Dosage: UNK
     Route: 065
  3. RIFAMPICIN (UNKNOWN) [Suspect]
     Active Substance: RIFAMPIN
     Indication: STAPHYLOCOCCAL INFECTION
     Dosage: UNK
     Route: 065
  4. GENTAMICIN SULFATE (UNKNOWN) [Suspect]
     Active Substance: GENTAMICIN SULFATE
     Indication: BACTERAEMIA

REACTIONS (4)
  - Thrombocytopenia [Unknown]
  - Nephropathy toxic [Unknown]
  - Pathogen resistance [Unknown]
  - Drug ineffective [Unknown]
